FAERS Safety Report 4363199-1 (Version None)
Quarter: 2004Q2

REPORT INFORMATION
  Report Type: 
  Country: None (occurrence: None)
  Receive Date: 20040519
  Receipt Date: 20040510
  Transmission Date: 20050107
  Serious: No
  Sender: FDA-Public Use
  Company Number: 04P-167-0260275-00

PATIENT
  Age: 56 Year
  Sex: Female
  Weight: 60 kg

DRUGS (3)
  1. BIAXIN [Suspect]
     Indication: HELICOBACTER INFECTION
     Dosage: 500 MG, 2 IN 1 D PER ORAL
     Route: 048
     Dates: start: 20040413, end: 20040418
  2. METRONIDAZOLE [Concomitant]
  3. LANSOPRAZOLE [Concomitant]

REACTIONS (1)
  - PARAESTHESIA [None]
